FAERS Safety Report 23338278 (Version 1)
Quarter: 2023Q4

REPORT INFORMATION
  Report Type: Spontaneous
  Country: US (occurrence: None)
  Receive Date: 20231224
  Receipt Date: 20231224
  Transmission Date: 20240109
  Serious: Yes (Other)
  Sender: FDA-Public Use
  Company Number: None

PATIENT
  Age: 44 Year
  Sex: Female
  Weight: 108 kg

DRUGS (8)
  1. OZEMPIC [Suspect]
     Active Substance: SEMAGLUTIDE
     Indication: Weight control
     Dosage: OTHER FREQUENCY : ONCE PER WEEK;?OTHER ROUTE : INJECTION;?
     Route: 050
     Dates: start: 20231024, end: 20231219
  2. OZEMPIC [Suspect]
     Active Substance: SEMAGLUTIDE
     Indication: Thyroid disorder
  3. LEVOTHYROXINE [Concomitant]
     Active Substance: LEVOTHYROXINE
  4. IBUPROFEN [Concomitant]
     Active Substance: IBUPROFEN
  5. OZEMPIC [Concomitant]
     Active Substance: SEMAGLUTIDE
  6. VITAMIN D3 [Concomitant]
     Active Substance: CHOLECALCIFEROL
  7. FOLIC ACID [Concomitant]
     Active Substance: FOLIC ACID
  8. BIOTIN [Concomitant]
     Active Substance: BIOTIN

REACTIONS (5)
  - Vomiting [None]
  - Vomiting [None]
  - Diarrhoea [None]
  - Dizziness [None]
  - Tremor [None]

NARRATIVE: CASE EVENT DATE: 20231128
